FAERS Safety Report 24803548 (Version 2)
Quarter: 2025Q1

REPORT INFORMATION
  Report Type: Spontaneous
  Country: US (occurrence: US)
  Receive Date: 20250103
  Receipt Date: 20250304
  Transmission Date: 20250409
  Serious: No
  Sender: IPSEN BIOPHARMACEUTICALS, INC.
  Company Number: US-IPSEN Group, Research and Development-2024-26592

PATIENT
  Age: 75 Year
  Sex: Male
  Weight: 77 kg

DRUGS (2)
  1. TAZVERIK [Suspect]
     Active Substance: TAZEMETOSTAT HYDROBROMIDE
     Indication: Follicular lymphoma stage III
     Dosage: 800 MG TWICE DAILY
     Route: 048
     Dates: start: 20241017, end: 20241216
  2. TAZVERIK [Suspect]
     Active Substance: TAZEMETOSTAT HYDROBROMIDE
     Dosage: 800 MG TWICE DAILY
     Route: 048

REACTIONS (2)
  - COVID-19 [Recovered/Resolved]
  - Product dose omission issue [Unknown]
